FAERS Safety Report 6354169-2 (Version None)
Quarter: 2009Q3

REPORT INFORMATION
  Report Type: 
  Country: None (occurrence: None)
  Receive Date: 20090914
  Receipt Date: 20090903
  Transmission Date: 20100115
  Serious: Yes (Hospitalization, Other)
  Sender: FDA-Public Use
  Company Number: US-ROCHE-654321

PATIENT
  Sex: Male
  Weight: 63.5 kg

DRUGS (1)
  1. CAPECITABINE [Suspect]
     Indication: COLORECTAL CANCER
     Dosage: 500 MG TABLETS, 3 BID
     Route: 048
     Dates: start: 20090724

REACTIONS (3)
  - DEHYDRATION [None]
  - HYPOPHAGIA [None]
  - RENAL IMPAIRMENT [None]
